FAERS Safety Report 5977590-0 (Version None)
Quarter: 2008Q4

REPORT INFORMATION
  Report Type: 
  Country: None (occurrence: None)
  Receive Date: 20081201
  Receipt Date: 20081201
  Transmission Date: 20090506
  Serious: Yes (Other)
  Sender: FDA-Public Use
  Company Number: None

PATIENT
  Sex: Male
  Weight: 97.7 kg

DRUGS (14)
  1. TAXOTERE [Suspect]
     Indication: PROSTATE CANCER
     Dosage: 75MG/M2 Q3WEEKS IV
     Route: 042
     Dates: start: 20080516
  2. TAXOTERE [Suspect]
     Indication: PROSTATE CANCER
     Dosage: 75MG/M2 Q3WEEKS IV
     Route: 042
     Dates: start: 20080606
  3. TAXOTERE [Suspect]
     Indication: PROSTATE CANCER
     Dosage: 75MG/M2 Q3WEEKS IV
     Route: 042
     Dates: start: 20080627
  4. PREDNISONE TAB [Suspect]
     Indication: PREMEDICATION
     Dosage: 5MG BID
     Dates: start: 20080516, end: 20080928
  5. LIPITOR [Concomitant]
  6. LUPRON [Concomitant]
  7. CALCIUM [Concomitant]
  8. ASPIRIN [Concomitant]
  9. M.V.I. [Concomitant]
  10. ADVIL PM [Concomitant]
  11. VICODIN [Concomitant]
  12. COLACE [Concomitant]
  13. TOPICAL HYDROCORTISONE [Concomitant]
  14. VITAMIN D [Concomitant]

REACTIONS (4)
  - DEHYDRATION [None]
  - INFECTION [None]
  - NEUTROPENIA [None]
  - PRESYNCOPE [None]
